FAERS Safety Report 5970958-8 (Version None)
Quarter: 2008Q4

REPORT INFORMATION
  Report Type: 
  Country: None (occurrence: None)
  Receive Date: 20081128
  Receipt Date: 20081119
  Transmission Date: 20090506
  Serious: Yes (Other)
  Sender: FDA-Public Use
  Company Number: PHBS2008NL06422

PATIENT
  Age: 33 Year
  Sex: Female

DRUGS (1)
  1. OXYTOCIN [Suspect]
     Indication: ARTIFICIAL RUPTURE OF MEMBRANES
     Route: 042

REACTIONS (7)
  - DRUG EXPOSURE DURING PREGNANCY [None]
  - HYSTERECTOMY [None]
  - LAPAROTOMY [None]
  - POSTPARTUM HAEMORRHAGE [None]
  - SCIATIC NERVE NEUROPATHY [None]
  - THERAPEUTIC EMBOLISATION [None]
  - UTERINE ATONY [None]
